FAERS Safety Report 13495905 (Version 3)
Quarter: 2017Q2

REPORT INFORMATION
  Report Type: Spontaneous
  Country: US (occurrence: US)
  Receive Date: 20170428
  Receipt Date: 20170607
  Transmission Date: 20170830
  Serious: No
  Sender: FDA-Public Use
  Company Number: US-GLAXOSMITHKLINE-US2017GSK061118

PATIENT
  Sex: Female

DRUGS (2)
  1. QVAR [Suspect]
     Active Substance: BECLOMETHASONE DIPROPIONATE
     Indication: PRODUCT USED FOR UNKNOWN INDICATION
     Dosage: 2 PUFF(S), UNK
  2. VENTOLIN HFA [Suspect]
     Active Substance: ALBUTEROL SULFATE
     Indication: PRODUCT USED FOR UNKNOWN INDICATION
     Dosage: 2 PUFF(S), UNK

REACTIONS (9)
  - Pain [Unknown]
  - Peripheral swelling [Unknown]
  - Skin ulcer [Unknown]
  - Swollen tongue [Unknown]
  - Throat irritation [Unknown]
  - Pruritus generalised [Unknown]
  - Lip swelling [Unknown]
  - Oral pain [Not Recovered/Not Resolved]
  - Mouth swelling [Unknown]
